FAERS Safety Report 4865639-8 (Version None)
Quarter: 2005Q4

REPORT INFORMATION
  Report Type: 
  Country: None (occurrence: None)
  Receive Date: 20051223
  Receipt Date: 20051110
  Transmission Date: 20060501
  Serious: Yes (Congenital Anomaly, Other)
  Sender: FDA-Public Use
  Company Number: GB-ABBOTT-05P-167-0316957-00

PATIENT
  Age: 0 Day
  Sex: Male

DRUGS (1)
  1. EPILIM [Suspect]
     Indication: DRUG EXPOSURE DURING PREGNANCY

REACTIONS (26)
  - ABNORMAL BEHAVIOUR [None]
  - ASTIGMATISM [None]
  - ATTENTION DEFICIT/HYPERACTIVITY DISORDER [None]
  - AUTISM [None]
  - CEREBRAL CYST [None]
  - CONGENITAL ANOMALY [None]
  - CONGENITAL INFECTION [None]
  - COORDINATION ABNORMAL [None]
  - DACRYOSTENOSIS CONGENITAL [None]
  - DEAFNESS [None]
  - DEVELOPMENTAL DELAY [None]
  - EAR MALFORMATION [None]
  - FACIAL DYSMORPHISM [None]
  - FLAT FEET [None]
  - FOETAL VALPROATE SYNDROME [None]
  - HYPOTONIA [None]
  - LEARNING DISORDER [None]
  - LIGAMENT LAXITY [None]
  - MECONIUM STAIN [None]
  - NOSE DEFORMITY [None]
  - NUCLEAR MAGNETIC RESONANCE IMAGING BRAIN ABNORMAL [None]
  - OTITIS MEDIA [None]
  - SPEECH DISORDER DEVELOPMENTAL [None]
  - STRABISMUS [None]
  - TOE DEFORMITY [None]
  - VISUAL ACUITY REDUCED [None]
